FAERS Safety Report 12527620 (Version 1)
Quarter: 2016Q3

REPORT INFORMATION
  Report Type: Spontaneous
  Country: US (occurrence: US)
  Receive Date: 20160705
  Receipt Date: 20160705
  Transmission Date: 20161109
  Serious: Yes (Death, Hospitalization)
  Sender: FDA-Public Use
  Company Number: US-IPCA LABORATORIES LIMITED-IPC201606-000546

PATIENT
  Age: 49 Year
  Sex: Male

DRUGS (13)
  1. INSULIN [Concomitant]
     Active Substance: INSULIN NOS
  2. SPIRONOLACTONE. [Concomitant]
     Active Substance: SPIRONOLACTONE
  3. METOPROLOL SUCCINATE. [Concomitant]
     Active Substance: METOPROLOL SUCCINATE
  4. FUROSEMIDE. [Suspect]
     Active Substance: FUROSEMIDE
     Route: 042
  5. DIGOXIN. [Concomitant]
     Active Substance: DIGOXIN
  6. METFORMIN HYDROCHLORIDE. [Suspect]
     Active Substance: METFORMIN HYDROCHLORIDE
     Indication: TYPE 2 DIABETES MELLITUS
  7. FUROSEMIDE. [Suspect]
     Active Substance: FUROSEMIDE
  8. FUROSEMIDE. [Suspect]
     Active Substance: FUROSEMIDE
  9. WARFARIN [Concomitant]
     Active Substance: WARFARIN
  10. METFORMIN HYDROCHLORIDE. [Suspect]
     Active Substance: METFORMIN HYDROCHLORIDE
  11. EPINEPHRINE. [Suspect]
     Active Substance: EPINEPHRINE
     Route: 042
  12. METOLAZONE. [Concomitant]
     Active Substance: METOLAZONE
  13. NOREPINEPHRINE [Suspect]
     Active Substance: NOREPINEPHRINE\NOREPINEPHRINE BITARTRATE
     Route: 042

REACTIONS (4)
  - Lactic acidosis [Fatal]
  - Toxicity to various agents [Fatal]
  - Metabolic alkalosis [Fatal]
  - Metabolic acidosis [Fatal]
